FAERS Safety Report 18015524 (Version 5)
Quarter: 2021Q4

REPORT INFORMATION
  Report Type: Spontaneous
  Country: US (occurrence: US)
  Receive Date: 20200713
  Receipt Date: 20211227
  Transmission Date: 20220303
  Serious: Yes (Other)
  Sender: FDA-Public Use
  Company Number: US-GILEAD-2020-0480354

PATIENT
  Age: 62 Year
  Sex: Female
  Weight: 87.982 kg

DRUGS (37)
  1. TRUVADA [Suspect]
     Active Substance: EMTRICITABINE\TENOFOVIR DISOPROXIL FUMARATE
     Indication: HIV infection
     Dosage: UNK
     Route: 048
     Dates: start: 2001, end: 2016
  2. TRUVADA [Suspect]
     Active Substance: EMTRICITABINE\TENOFOVIR DISOPROXIL FUMARATE
     Dosage: UNK
     Route: 048
     Dates: start: 1991, end: 2020
  3. ACETAMINOPHEN [Concomitant]
     Active Substance: ACETAMINOPHEN
  4. AMOXICILLIN [Concomitant]
     Active Substance: AMOXICILLIN
  5. AMPICILLIN [Concomitant]
     Active Substance: AMPICILLIN
  6. BACTRIM [Concomitant]
     Active Substance: SULFAMETHOXAZOLE\TRIMETHOPRIM
  7. LEVOTHYROXINE [Concomitant]
     Active Substance: LEVOTHYROXINE
  8. KALETRA [Concomitant]
     Active Substance: LOPINAVIR\RITONAVIR
  9. NORVIR [Concomitant]
     Active Substance: RITONAVIR
  10. TIVICAY [Concomitant]
     Active Substance: DOLUTEGRAVIR SODIUM
  11. ABACAVIR [Concomitant]
     Active Substance: ABACAVIR
  12. EPIVIR [Concomitant]
     Active Substance: LAMIVUDINE
  13. PREZISTA [Concomitant]
     Active Substance: DARUNAVIR ETHANOLATE
  14. CLONIDINE [Concomitant]
     Active Substance: CLONIDINE
  15. DOXAZOSIN MESYLATE [Concomitant]
     Active Substance: DOXAZOSIN MESYLATE
  16. PRAVASTATIN [Concomitant]
     Active Substance: PRAVASTATIN
  17. AZITHROMYCIN [Concomitant]
     Active Substance: AZITHROMYCIN
  18. AMLODIPINE BESYLATE\BENAZEPRIL HYDROCHLORIDE [Concomitant]
     Active Substance: AMLODIPINE BESYLATE\BENAZEPRIL HYDROCHLORIDE
  19. CLINDAMYCIN [Concomitant]
     Active Substance: CLINDAMYCIN
  20. NIFEDIPINE [Concomitant]
     Active Substance: NIFEDIPINE
  21. ONDANSETRON [Concomitant]
     Active Substance: ONDANSETRON
  22. SIMVASTATIN [Concomitant]
     Active Substance: SIMVASTATIN
  23. ZEMPLAR [Concomitant]
     Active Substance: PARICALCITOL
  24. LOSARTAN POTASSIUM [Concomitant]
     Active Substance: LOSARTAN POTASSIUM
  25. CYTRA-2 [Concomitant]
     Active Substance: CITRIC ACID MONOHYDRATE\TRISODIUM CITRATE DIHYDRATE
  26. IBUPROFEN [Concomitant]
     Active Substance: IBUPROFEN
  27. AMLODIPINE BESYLATE [Concomitant]
     Active Substance: AMLODIPINE BESYLATE
  28. SODIUM BICARBONATE [Concomitant]
     Active Substance: SODIUM BICARBONATE
  29. FERROUS SULFATE [Concomitant]
     Active Substance: FERROUS SULFATE
  30. DOCUSATE SODIUM [Concomitant]
     Active Substance: DOCUSATE SODIUM
  31. HYDROCODONE BITARTRATE AND ACETAMINOPHEN [Concomitant]
     Active Substance: ACETAMINOPHEN\HYDROCODONE BITARTRATE
  32. METOPROLOL [Concomitant]
     Active Substance: METOPROLOL
  33. GENTAMICIN [Concomitant]
     Active Substance: GENTAMICIN
  34. CIPROFLOXACIN [Concomitant]
     Active Substance: CIPROFLOXACIN
  35. ISORBIDE [ISOSORBIDE DINITRATE] [Concomitant]
  36. CARVEDILOL [Concomitant]
     Active Substance: CARVEDILOL
  37. LASIX [Concomitant]
     Active Substance: FUROSEMIDE

REACTIONS (10)
  - End stage renal disease [Not Recovered/Not Resolved]
  - Multiple fractures [Unknown]
  - Osteoporosis [Not Recovered/Not Resolved]
  - Osteonecrosis [Unknown]
  - Renal failure [Unknown]
  - Bone loss [Unknown]
  - Emotional distress [Unknown]
  - Hypothyroidism [Unknown]
  - Bone density decreased [Unknown]
  - Pain [Unknown]

NARRATIVE: CASE EVENT DATE: 20090101
